FAERS Safety Report 6126425-4 (Version None)
Quarter: 2009Q1

REPORT INFORMATION
  Report Type: 
  Country: None (occurrence: None)
  Receive Date: 20090320
  Receipt Date: 20090312
  Transmission Date: 20090719
  Serious: Yes (Life-Threatening, Hospitalization)
  Sender: FDA-Public Use
  Company Number: FR-BAYER-200916022GPV

PATIENT
  Age: 75 Year
  Sex: Female

DRUGS (8)
  1. CIFLOX [Suspect]
     Indication: BRONCHITIS
     Dosage: UNIT DOSE: 500 MG
     Route: 048
     Dates: start: 20081222, end: 20081227
  2. ZYLORIC [Suspect]
     Indication: HYPERURICAEMIA
     Route: 048
     Dates: start: 20081204, end: 20081231
  3. COLCHIMAX [Concomitant]
     Indication: HYPERURICAEMIA
     Route: 048
     Dates: start: 20081204, end: 20081214
  4. ISOPTIN [Concomitant]
     Indication: DRUG USE FOR UNKNOWN INDICATION
     Route: 065
  5. ALDALIX [Concomitant]
     Indication: DRUG USE FOR UNKNOWN INDICATION
     Route: 065
     Dates: end: 20090107
  6. CRESTOR [Concomitant]
     Indication: DRUG USE FOR UNKNOWN INDICATION
     Route: 065
     Dates: end: 20081231
  7. ACTONEL [Concomitant]
     Indication: DRUG USE FOR UNKNOWN INDICATION
     Route: 065
     Dates: end: 20081231
  8. OROKEN [Concomitant]
     Indication: PHARYNGITIS
     Route: 065
     Dates: start: 20090103

REACTIONS (9)
  - BLEPHARITIS [None]
  - CHEILITIS [None]
  - CONJUNCTIVITIS [None]
  - DRUG RASH WITH EOSINOPHILIA AND SYSTEMIC SYMPTOMS [None]
  - EOSINOPHILIA [None]
  - HYPERKERATOSIS [None]
  - OMPHALITIS [None]
  - RASH [None]
  - RASH PUSTULAR [None]
